FAERS Safety Report 4555246-9 (Version None)
Quarter: 2004Q4

REPORT INFORMATION
  Report Type: 
  Country: None (occurrence: None)
  Receive Date: 20041227
  Receipt Date: 20040907
  Transmission Date: 20050328
  Serious: No
  Sender: FDA-Public Use
  Company Number: 04P-163-0272701-00

PATIENT
  Age: 57 Year
  Sex: Male
  Weight: 67.586 kg

DRUGS (6)
  1. HUMIRA [Suspect]
     Indication: RHEUMATOID ARTHRITIS
     Dosage: 40 MG, 1 IN 2 WK, SUBCUTANEOUS
     Route: 058
     Dates: start: 20040801
  2. AMLODIPINE BESYLATE [Concomitant]
  3. FEXOFENADINE HYDROCHLORIDE [Concomitant]
  4. DIAVAN [Concomitant]
  5. BUCINDOLOL HYDROCHLORIDE [Concomitant]
  6. ALENDRONATE SODIUM [Concomitant]

REACTIONS (1)
  - COUGH [None]
